FAERS Safety Report 17563975 (Version 2)
Quarter: 2020Q2

REPORT INFORMATION
  Report Type: Spontaneous
  Country: UA (occurrence: UA)
  Receive Date: 20200320
  Receipt Date: 20200413
  Transmission Date: 20200713
  Serious: Yes (Other)
  Sender: FDA-Public Use
  Company Number: UA-ROCHE-2569318

PATIENT
  Age: 38 Year
  Sex: Female

DRUGS (1)
  1. AVASTIN [Suspect]
     Active Substance: BEVACIZUMAB
     Indication: COLORECTAL CANCER METASTATIC
     Route: 065
     Dates: start: 201903, end: 201906

REACTIONS (4)
  - Metastases to vagina [Unknown]
  - Lung neoplasm [Unknown]
  - Hepatic lesion [Unknown]
  - Metastases to reproductive organ [Unknown]

NARRATIVE: CASE EVENT DATE: 201908
